FAERS Safety Report 8834703 (Version 1)
Quarter: 2012Q4

REPORT INFORMATION
  Report Type: Spontaneous
  Country: US (occurrence: None)
  Receive Date: 20120925
  Receipt Date: 20120925
  Transmission Date: 20130627
  Serious: Yes (Hospitalization)
  Sender: FDA-Public Use
  Company Number: 2012PROUSA01966

PATIENT
  Age: 76 Year
  Sex: Male

DRUGS (1)
  1. PROVENGE [Suspect]
     Indication: PROSTATE CANCER METASTATIC
     Dosage: 150 ml, single, Intravenous
     Route: 042
     Dates: start: 20120820, end: 20120820

REACTIONS (3)
  - Cellulitis [None]
  - Device occlusion [None]
  - Poor venous access [None]
